FAERS Safety Report 11927462 (Version 3)
Quarter: 2016Q1

REPORT INFORMATION
  Report Type: Spontaneous
  Country: CO (occurrence: CO)
  Receive Date: 20160119
  Receipt Date: 20160224
  Transmission Date: 20160526
  Serious: Yes (Death, Life-Threatening, Hospitalization, Disabling, Other)
  Sender: FDA-Public Use
  Company Number: CO-BAYER-2016-010033

PATIENT
  Sex: Female

DRUGS (2)
  1. WARFARIN [Concomitant]
     Active Substance: WARFARIN
     Indication: ANTIPHOSPHOLIPID SYNDROME
     Dosage: UNK
  2. ADEMPAS [Suspect]
     Active Substance: RIOCIGUAT
     Indication: PULMONARY HYPERTENSION
     Dosage: 2 MG, Q8HR
     Route: 048

REACTIONS (11)
  - Generalised oedema [None]
  - Hypovolaemic shock [None]
  - Post procedural complication [Recovered/Resolved]
  - International normalised ratio increased [None]
  - Death [Fatal]
  - Appendicitis [Recovered/Resolved]
  - Polyneuropathy [None]
  - Spinal epidural haematoma [None]
  - Diplegia [None]
  - Blood pressure abnormal [None]
  - Decubitus ulcer [None]

NARRATIVE: CASE EVENT DATE: 201512
